FAERS Safety Report 5302028-6 (Version None)
Quarter: 2007Q2

REPORT INFORMATION
  Report Type: 
  Country: None (occurrence: None)
  Receive Date: 20070416
  Receipt Date: 20070416
  Transmission Date: 20071010
  Serious: No
  Sender: FDA-Public Use
  Company Number: None

PATIENT
  Sex: Male
  Weight: 74.3899 kg

DRUGS (1)
  1. METOPROLOL SUCCINATE [Suspect]
     Indication: HEART RATE IRREGULAR
     Dosage: 1   DAILY  PO
     Route: 048
     Dates: start: 20070323, end: 20070413

REACTIONS (4)
  - INSOMNIA [None]
  - OEDEMA PERIPHERAL [None]
  - PERIPHERAL COLDNESS [None]
  - SKIN DISCOLOURATION [None]
